FAERS Safety Report 5988677-0 (Version None)
Quarter: 2008Q4

REPORT INFORMATION
  Report Type: 
  Country: None (occurrence: None)
  Receive Date: 20081210
  Receipt Date: 20081201
  Transmission Date: 20090506
  Serious: Yes (Other)
  Sender: FDA-Public Use
  Company Number: PHHY2008CN30495

PATIENT
  Age: 56 Year
  Sex: Male

DRUGS (4)
  1. DIOVAN [Suspect]
     Indication: HYPERTENSION
     Dosage: 80 MG, QD
     Route: 048
     Dates: start: 20070301
  2. ASPIRIN [Suspect]
     Dosage: 100 MG, QD
     Dates: start: 20070701
  3. INSULIN [Suspect]
  4. PENICILLIN ^GRUNENTHAL^ [Suspect]

REACTIONS (2)
  - HAEMATURIA [None]
  - HYPERSENSITIVITY [None]
